FAERS Safety Report 8225370-8 (Version None)
Quarter: 2012Q1

REPORT INFORMATION
  Report Type: 
  Country: None (occurrence: None)
  Receive Date: 20120321
  Receipt Date: 20120315
  Transmission Date: 20120608
  Serious: Yes (Other)
  Sender: FDA-Public Use
  Company Number: JP-CUBIST-2012S1000222

PATIENT
  Age: 73 Year
  Sex: Male
  Weight: 55 kg

DRUGS (6)
  1. RIFAMPICIN [Concomitant]
     Indication: POSTOPERATIVE WOUND INFECTION
     Route: 048
     Dates: start: 20120117, end: 20120130
  2. CUBICIN [Suspect]
     Indication: POSTOPERATIVE WOUND INFECTION
     Route: 041
     Dates: start: 20120130, end: 20120214
  3. TENORMIN [Concomitant]
     Indication: PRODUCT USED FOR UNKNOWN INDICATION
     Dosage: DIVIDED DOSE FREQUENCY U
     Route: 048
  4. VANCOMYCIN [Concomitant]
     Indication: POSTOPERATIVE WOUND INFECTION
     Route: 041
     Dates: start: 20120112, end: 20120130
  5. AMLODIPINE [Concomitant]
     Indication: PRODUCT USED FOR UNKNOWN INDICATION
     Dosage: DIVIDED DOSE FREQUENCY U
     Route: 048
  6. CANDESARTAN CILEXETIL [Concomitant]
     Indication: PRODUCT USED FOR UNKNOWN INDICATION
     Dosage: DIVIDED DOSE FREQUENCY U
     Route: 048

REACTIONS (1)
  - INTERSTITIAL LUNG DISEASE [None]
